FAERS Safety Report 9010589 (Version 2)
Quarter: 2013Q1

REPORT INFORMATION
  Report Type: Report from Study
  Country: UA (occurrence: UA)
  Receive Date: 20130109
  Receipt Date: 20130315
  Transmission Date: 20140127
  Serious: Yes (Hospitalization)
  Sender: FDA-Public Use
  Company Number: UA-EISAI INC-E2007-00915-CLI-UA

PATIENT
  Age: 51 Year
  Sex: Female
  Weight: 62 kg

DRUGS (3)
  1. E2007 (PERAMPANEL) [Suspect]
     Indication: EPILEPSY
     Dosage: DOUBLE BLIND CONVERSION PERIOD
     Route: 048
     Dates: start: 20091112, end: 20100308
  2. E2007 (PERAMPANEL) [Suspect]
     Route: 048
     Dates: start: 20100309
  3. VALPROIC ACID [Concomitant]
     Indication: EPILEPSY
     Dosage: 300 MG ONCE A DAY AND 500 MG ONCE A DAY
     Route: 048
     Dates: start: 20111020

REACTIONS (5)
  - Craniocerebral injury [Recovered/Resolved with Sequelae]
  - Subarachnoid haemorrhage [Recovered/Resolved with Sequelae]
  - Contusion [Recovered/Resolved with Sequelae]
  - Brain contusion [Recovered/Resolved with Sequelae]
  - Skull fractured base [Recovered/Resolved with Sequelae]
